FAERS Safety Report 13020280 (Version 1)
Quarter: 2016Q4

REPORT INFORMATION
  Report Type: Spontaneous
  Country: ES (occurrence: ES)
  Receive Date: 20161212
  Receipt Date: 20161212
  Transmission Date: 20170207
  Serious: Yes (Other)
  Sender: FDA-Public Use
  Company Number: ES-TEVA-708020ISR

PATIENT
  Age: 57 Year
  Sex: Female

DRUGS (8)
  1. OXALIPLATIN. [Suspect]
     Active Substance: OXALIPLATIN
     Indication: COLORECTAL CANCER METASTATIC
     Dosage: 130 MILLIGRAM/MILLILITERS DAILY;
     Dates: start: 201005
  2. AFLIBERCEPT [Suspect]
     Active Substance: AFLIBERCEPT
     Indication: COLON CANCER METASTATIC
     Dosage: 4MG/KG ON DAY 1 IN A 14-DAY CYCLE
     Route: 065
  3. CAPECITABINE. [Concomitant]
     Active Substance: CAPECITABINE
     Dates: start: 201005
  4. FOLINIC ACID [Suspect]
     Active Substance: LEUCOVORIN
     Indication: COLON CANCER METASTATIC
     Dosage: 200MG/M2 ON DAY 1 IN A 14-DAY CYCLE
     Route: 065
     Dates: start: 201206
  5. FLUOROURACIL. [Suspect]
     Active Substance: FLUOROURACIL
     Indication: COLON CANCER METASTATIC
     Dosage: 400MG/M2 ON DAY 1 IN A 14-DAY CYCLE, BOLUS
     Route: 065
     Dates: start: 201206
  6. BEVACIZUMAB [Concomitant]
     Active Substance: BEVACIZUMAB
     Dates: start: 201005
  7. IRINOTECAN [Suspect]
     Active Substance: IRINOTECAN
     Indication: COLON CANCER METASTATIC
     Dosage: 180MG/M2 ON DAY 1 IN A 14-DAY CYCLE
     Route: 065
     Dates: start: 201206
  8. FLUOROURACIL. [Suspect]
     Active Substance: FLUOROURACIL
     Dosage: 2400MG/M2 ON DAY 1 IN A 14-DAY CYCLE, CONTINUOUS INFUSION
     Route: 065
     Dates: start: 201206

REACTIONS (7)
  - Hypertension [Recovering/Resolving]
  - Neutropenia [Unknown]
  - Neurotoxicity [Unknown]
  - Back pain [Unknown]
  - Pharyngotonsillitis [Recovering/Resolving]
  - Infusion related reaction [Unknown]
  - Mucosal inflammation [Unknown]
